FAERS Safety Report 15491738 (Version 1)
Quarter: 2018Q4

REPORT INFORMATION
  Report Type: Spontaneous
  Country: US (occurrence: US)
  Receive Date: 20181004
  Receipt Date: 20181004
  Transmission Date: 20190205
  Serious: No
  Sender: FDA-Public Use
  Company Number: None

PATIENT
  Age: 36 Year
  Sex: Female

DRUGS (7)
  1. SUBOXONE [Concomitant]
     Active Substance: BUPRENORPHINE HYDROCHLORIDE\NALOXONE HYDROCHLORIDE
  2. IBUPROFEN. [Concomitant]
     Active Substance: IBUPROFEN
  3. MIRENA [Suspect]
     Active Substance: LEVONORGESTREL
     Dates: start: 20180724, end: 20180914
  4. PARAGARD T 380A [Concomitant]
     Active Substance: COPPER
  5. METRONIDAZOLE. [Concomitant]
     Active Substance: METRONIDAZOLE
  6. DAILY VITAMINS [Concomitant]
  7. TYLENOL [Concomitant]
     Active Substance: ACETAMINOPHEN

REACTIONS (11)
  - Candida infection [None]
  - Insomnia [None]
  - Tachycardia [None]
  - Depression [None]
  - Emotional distress [None]
  - Panic attack [None]
  - Anxiety [None]
  - Hormone level abnormal [None]
  - Chest pain [None]
  - Pain [None]
  - Cardiac flutter [None]

NARRATIVE: CASE EVENT DATE: 20180824
